FAERS Safety Report 5047141-6 (Version None)
Quarter: 2006Q3

REPORT INFORMATION
  Report Type: 
  Country: None (occurrence: None)
  Receive Date: 20060703
  Receipt Date: 20060620
  Transmission Date: 20061208
  Serious: Yes (Other)
  Sender: FDA-Public Use
  Company Number: 2006050311

PATIENT
  Age: 78 Year
  Sex: Male

DRUGS (1)
  1. MIGLITOL TABLET (MIGLITOL) [Suspect]
     Dosage: 150 MG (1 D), ORAL
     Route: 048
     Dates: start: 20060125, end: 20060211

REACTIONS (3)
  - PAIN [None]
  - PARAESTHESIA [None]
  - RHABDOMYOLYSIS [None]
